FAERS Safety Report 7130190-1 (Version None)
Quarter: 2010Q4

REPORT INFORMATION
  Report Type: 
  Country: None (occurrence: None)
  Receive Date: 20101201
  Receipt Date: 20101124
  Transmission Date: 20110411
  Serious: Yes (Life-Threatening)
  Sender: FDA-Public Use
  Company Number: DE-JNJFOC-20101108838

PATIENT
  Age: 76 Year
  Sex: Male

DRUGS (2)
  1. REOPRO [Suspect]
     Indication: MYOCARDIAL INFARCTION
     Route: 042
  2. REOPRO [Suspect]
     Route: 042

REACTIONS (2)
  - CARDIAC TAMPONADE [None]
  - HAEMORRHAGE [None]
